FAERS Safety Report 10373645 (Version 1)
Quarter: 2014Q3

REPORT INFORMATION
  Report Type: Spontaneous
  Country: US (occurrence: US)
  Receive Date: 20140809
  Receipt Date: 20140809
  Transmission Date: 20150326
  Serious: No
  Sender: FDA-Public Use
  Company Number: US-009507513-1408USA004768

PATIENT
  Age: 23 Year
  Sex: Female

DRUGS (1)
  1. IMPLANON [Suspect]
     Active Substance: ETONOGESTREL
     Indication: CONTRACEPTION
     Dosage: 3 YEAR IMPLANT
     Dates: start: 20110901

REACTIONS (5)
  - Circumstance or information capable of leading to medication error [Unknown]
  - Haemorrhage [Unknown]
  - Mood swings [Unknown]
  - Euphoric mood [Unknown]
  - Discomfort [Unknown]

NARRATIVE: CASE EVENT DATE: 201407
